FAERS Safety Report 22918567 (Version 2)
Quarter: 2023Q4

REPORT INFORMATION
  Report Type: Spontaneous
  Country: JP (occurrence: JP)
  Receive Date: 20230907
  Receipt Date: 20231222
  Transmission Date: 20240110
  Serious: Yes (Other)
  Sender: FDA-Public Use
  Company Number: JP-SA-2023SA260862

PATIENT

DRUGS (5)
  1. HYDROXYCHLOROQUINE SULFATE [Suspect]
     Active Substance: HYDROXYCHLOROQUINE SULFATE
     Indication: Systemic lupus erythematosus
     Dosage: 200 MG, QD (FILM-COATED TABLET)
     Route: 048
     Dates: start: 20210814, end: 20230624
  2. PREDONINE [Concomitant]
     Active Substance: PREDNISOLONE
     Indication: Systemic lupus erythematosus
     Dosage: 5 MG, QD
     Route: 048
     Dates: start: 20210814
  3. LUNESTA [Concomitant]
     Active Substance: ESZOPICLONE
     Indication: Insomnia
     Dosage: 1 MG, QD
     Route: 048
  4. PROGRAF [Concomitant]
     Active Substance: TACROLIMUS
     Indication: Systemic lupus erythematosus
     Dosage: 2.5 MG, QD
     Route: 048
     Dates: start: 20211120
  5. ALENDRONATE [Concomitant]
     Active Substance: ALENDRONATE SODIUM
     Indication: Prophylaxis
     Dosage: 35 MG, WEEKLY
     Route: 048
     Dates: start: 20210814

REACTIONS (5)
  - Retinal tear [Recovering/Resolving]
  - Retinal detachment [Recovering/Resolving]
  - Vitreous floaters [Recovering/Resolving]
  - Visual acuity reduced [Recovering/Resolving]
  - Eye haemorrhage [Unknown]

NARRATIVE: CASE EVENT DATE: 20230101
